FAERS Safety Report 24278857 (Version 1)
Quarter: 2024Q3

REPORT INFORMATION
  Report Type: Spontaneous
  Country: US (occurrence: None)
  Receive Date: 20240831
  Receipt Date: 20240831
  Transmission Date: 20241017
  Serious: Yes (Other)
  Sender: Public
  Company Number: None

PATIENT
  Age: 74 Year
  Sex: Female
  Weight: 73.35 kg

DRUGS (5)
  1. PAXLOVID [Suspect]
     Active Substance: NIRMATRELVIR\RITONAVIR
     Indication: COVID-19
     Dosage: 3 CAPSULES TWICE A DAY ORAL
     Route: 048
     Dates: start: 20240825, end: 20240826
  2. ROSUVASTATIN [Concomitant]
     Active Substance: ROSUVASTATIN\ROSUVASTATIN CALCIUM
  3. TYLENOL [Concomitant]
  4. VITAMINS [Concomitant]
     Active Substance: VITAMINS
  5. co-q10 [Concomitant]

REACTIONS (5)
  - Pruritus [None]
  - Erythema [None]
  - Erythema [None]
  - Therapy cessation [None]
  - COVID-19 [None]

NARRATIVE: CASE EVENT DATE: 20240826
